FAERS Safety Report 16544916 (Version 1)
Quarter: 2019Q3

REPORT INFORMATION
  Report Type: Spontaneous
  Country: IT (occurrence: IT)
  Receive Date: 20190709
  Receipt Date: 20190709
  Transmission Date: 20191004
  Serious: Yes (Hospitalization)
  Sender: FDA-Public Use
  Company Number: IT-MYLANLABS-2019M1062266

PATIENT
  Age: 58 Year
  Sex: Female

DRUGS (2)
  1. CAPECITABINE. [Suspect]
     Active Substance: CAPECITABINE
     Indication: BREAST CANCER
     Dosage: UNK
  2. BRIVIRAC [Interacting]
     Active Substance: BRIVUDINE
     Indication: HERPES ZOSTER
     Dosage: 125 MILLIGRAM, QD

REACTIONS (4)
  - Bone marrow failure [Unknown]
  - Drug interaction [Unknown]
  - Dehydration [Unknown]
  - Fungal infection [Unknown]
